FAERS Safety Report 10973437 (Version 1)
Quarter: 2015Q1

REPORT INFORMATION
  Report Type: Spontaneous
  Country: US (occurrence: None)
  Receive Date: 20150331
  Receipt Date: 20150331
  Transmission Date: 20150721
  Serious: No
  Sender: FDA-Public Use
  Company Number: None

PATIENT
  Age: 34 Year
  Sex: Male
  Weight: 90.72 kg

DRUGS (5)
  1. ALEVE [Concomitant]
     Active Substance: NAPROXEN SODIUM
  2. ICY HOT [Concomitant]
     Active Substance: MENTHOL\METHYL SALICYLATE
  3. PREVACID [Concomitant]
     Active Substance: LANSOPRAZOLE
  4. CAPZASIN-HO [Suspect]
     Active Substance: CAPSAICIN
     Indication: ARTHRALGIA
     Dates: start: 20150329, end: 20150329
  5. CAPZASIN-HO [Suspect]
     Active Substance: CAPSAICIN
     Indication: ANALGESIC THERAPY
     Dates: start: 20150329, end: 20150329

REACTIONS (1)
  - Application site pain [None]

NARRATIVE: CASE EVENT DATE: 20150329
